FAERS Safety Report 5575218-5 (Version None)
Quarter: 2007Q4

REPORT INFORMATION
  Report Type: 
  Country: None (occurrence: None)
  Receive Date: 20071227
  Receipt Date: 20071217
  Transmission Date: 20080405
  Serious: Yes (Hospitalization)
  Sender: FDA-Public Use
  Company Number: JP-PFIZER INC-2007091326

PATIENT
  Age: 50 Year
  Sex: Female

DRUGS (3)
  1. LIPITOR [Suspect]
     Indication: HYPERLIPIDAEMIA
     Dosage: DAILY DOSE:10MG
     Route: 048
     Dates: start: 20020101, end: 20041023
  2. GLUCOBAY [Concomitant]
     Dosage: DAILY DOSE:150MG
     Route: 048
     Dates: start: 20000918, end: 20060912
  3. AMLODIN [Concomitant]
     Dosage: DAILY DOSE:2.5MG
     Route: 048

REACTIONS (5)
  - JAUNDICE [None]
  - LIVER DISORDER [None]
  - MALAISE [None]
  - MYALGIA [None]
  - PRURITUS [None]
